FAERS Safety Report 7000817-3 (Version None)
Quarter: 2010Q3

REPORT INFORMATION
  Report Type: 
  Country: None (occurrence: None)
  Receive Date: 20100920
  Receipt Date: 20091109
  Transmission Date: 20110219
  Serious: Yes (Hospitalization)
  Sender: FDA-Public Use
  Company Number: US-ASTRAZENECA-2009SE25308

PATIENT
  Age: 58 Year
  Sex: Female
  Weight: 71.2 kg

DRUGS (7)
  1. SEROQUEL [Suspect]
     Indication: BIPOLAR DISORDER
     Route: 048
     Dates: start: 20030101
  2. SEROQUEL [Suspect]
     Indication: SCHIZOPHRENIA
     Route: 048
     Dates: start: 20030101
  3. SEROQUEL [Suspect]
     Route: 048
     Dates: start: 20090201
  4. SEROQUEL [Suspect]
     Route: 048
     Dates: start: 20090201
  5. TEGRETOL [Concomitant]
  6. PREMARIN [Concomitant]
     Indication: MENOPAUSE
  7. LEVOXYL [Concomitant]
     Indication: THYROID DISORDER

REACTIONS (1)
  - DRUG INEFFECTIVE [None]
